FAERS Safety Report 17091081 (Version 1)
Quarter: 2019Q4

REPORT INFORMATION
  Report Type: Spontaneous
  Country: CN (occurrence: CN)
  Receive Date: 20191129
  Receipt Date: 20191129
  Transmission Date: 20200122
  Serious: Yes (Hospitalization, Other)
  Sender: FDA-Public Use
  Company Number: CN-EMD SERONO-9131139

PATIENT
  Age: 32 Year
  Sex: Female

DRUGS (15)
  1. GONAL-F [Suspect]
     Active Substance: FOLLITROPIN
     Dosage: ON THE WRONG SCALE FOR PERSONAL REASONS
     Route: 058
     Dates: start: 20190729, end: 20190729
  2. PROGESTERONE. [Concomitant]
     Active Substance: PROGESTERONE
     Route: 030
     Dates: start: 201908, end: 201908
  3. GONAL-F [Suspect]
     Active Substance: FOLLITROPIN
     Indication: OVULATION INDUCTION
     Route: 058
     Dates: start: 20190722, end: 20190724
  4. GONAL-F [Suspect]
     Active Substance: FOLLITROPIN
     Indication: ASSISTED REPRODUCTIVE TECHNOLOGY
     Route: 058
     Dates: start: 20190725, end: 20190728
  5. DECAPEPTYL                         /00486501/ [Suspect]
     Active Substance: GONADORELIN
     Route: 058
     Dates: start: 20190722, end: 20190731
  6. OVIDREL [Concomitant]
     Active Substance: CHORIOGONADOTROPIN ALFA
     Indication: ASSISTED REPRODUCTIVE TECHNOLOGY
     Route: 058
     Dates: start: 20190801
  7. GONAL-F [Suspect]
     Active Substance: FOLLITROPIN
     Route: 058
     Dates: start: 20190730, end: 20190731
  8. DECAPEPTYL                         /00486501/ [Suspect]
     Active Substance: GONADORELIN
     Indication: ASSISTED REPRODUCTIVE TECHNOLOGY
     Route: 058
     Dates: start: 20190708, end: 20190717
  9. LEVOTHYROXINE SODIUM. [Concomitant]
     Active Substance: LEVOTHYROXINE SODIUM
     Indication: HYPOTHYROIDISM
     Route: 048
     Dates: start: 201903
  10. PROGESTERONE. [Concomitant]
     Active Substance: PROGESTERONE
     Indication: BLOOD LUTEINISING HORMONE DECREASED
     Dosage: GEL
     Dates: start: 20190803, end: 20190826
  11. DECAPEPTYL                         /00486501/ [Suspect]
     Active Substance: GONADORELIN
     Route: 058
     Dates: start: 20190718, end: 20190721
  12. PROGESTERONE. [Concomitant]
     Active Substance: PROGESTERONE
     Route: 030
     Dates: start: 201908, end: 20190826
  13. DYDROGESTERONE [Concomitant]
     Active Substance: DYDROGESTERONE
     Indication: BLOOD LUTEINISING HORMONE DECREASED
     Route: 048
     Dates: start: 20190803, end: 20190826
  14. PROGESTERONE. [Concomitant]
     Active Substance: PROGESTERONE
     Indication: BLOOD LUTEINISING HORMONE DECREASED
     Route: 030
     Dates: start: 20190803, end: 201908
  15. PROGESTERONE. [Concomitant]
     Active Substance: PROGESTERONE
     Route: 030
     Dates: start: 201908, end: 201908

REACTIONS (5)
  - Ectopic pregnancy [Recovered/Resolved]
  - Pelvic inflammatory disease [Recovered/Resolved]
  - Cervical dysplasia [Recovered/Resolved]
  - Adnexa uteri cyst [Recovered/Resolved]
  - Incorrect dose administered [Recovered/Resolved]

NARRATIVE: CASE EVENT DATE: 20190729
